APPROVED DRUG PRODUCT: RISPERIDONE
Active Ingredient: RISPERIDONE
Strength: 4MG
Dosage Form/Route: TABLET, ORALLY DISINTEGRATING;ORAL
Application: A078474 | Product #002 | TE Code: AB
Applicant: SUN PHARMACEUTICAL INDUSTRIES LTD
Approved: Aug 6, 2010 | RLD: No | RS: No | Type: RX